FAERS Safety Report 20742354 (Version 1)
Quarter: 2022Q2

REPORT INFORMATION
  Report Type: Report from Study
  Country: GB (occurrence: GB)
  Receive Date: 20220424
  Receipt Date: 20220424
  Transmission Date: 20220720
  Serious: Yes (Hospitalization)
  Sender: FDA-Public Use
  Company Number: GB-Crescent Pharma Limited-CRS202203-000031

PATIENT
  Age: 50 Year
  Sex: Female

DRUGS (12)
  1. DOCETAXEL [Suspect]
     Active Substance: DOCETAXEL
     Indication: HER2 positive breast cancer
     Dosage: ON 04/NOV/2015, SHE COMPLETED PLANNED CYCLES OF DOCETAXEL, UNIT DOSE : 169 MG, THERAPY DURATION : 10
     Route: 042
     Dates: start: 20150722, end: 20151104
  2. LETROZOLE [Suspect]
     Active Substance: LETROZOLE
     Indication: HER2 positive breast cancer
     Dosage: 2.5 MILLIGRAM DAILY; (FROM 24 NOV 2015), UNIT DOSE : 2.5 MG , FREQUENCY TIME : 1 DAYS
     Route: 048
     Dates: start: 20151124
  3. PERTUZUMAB [Suspect]
     Active Substance: PERTUZUMAB
     Indication: HER2 positive breast cancer
     Dosage: MAINTENANCE DOSE, UNIT DOSE : 420 MG , THERAPY DURATION : 923 DAYS
     Route: 065
     Dates: start: 20150812, end: 20180220
  4. PERTUZUMAB [Suspect]
     Active Substance: PERTUZUMAB
     Dosage: , UNIT DOSE :840 MG , THERAPY DURATION : 923 DAYS
     Route: 042
     Dates: start: 20150722, end: 20150722
  5. TRASTUZUMAB [Suspect]
     Active Substance: TRASTUZUMAB
     Indication: Product used for unknown indication
     Dosage: LOADING DOSE, , UNIT DOSE : 900 MG , THERAPY DURATION : 1 DAYS
     Route: 042
     Dates: start: 20150722, end: 20150722
  6. TRASTUZUMAB [Suspect]
     Active Substance: TRASTUZUMAB
     Dosage: MAINTENANCE DOSE ,LOADING DOSE, , UNIT DOSE : 675 MG , THERAPY DURATION : 860 DAYS
     Route: 042
     Dates: start: 20150812, end: 20171219
  7. TRASTUZUMAB [Suspect]
     Active Substance: TRASTUZUMAB
     Dosage: MAINTENANCE DOSE, , UNIT DOSE : 525 MG , THERAPY DURATION : 42 DAYS
     Route: 042
     Dates: start: 20180109, end: 20180220
  8. BENDROFLUMETHIAZIDE [Concomitant]
     Active Substance: BENDROFLUMETHIAZIDE
     Dosage: UNIT DOSE : 2.5 MILLIGRAM
     Route: 048
  9. DEXAMETHASONE [Concomitant]
     Active Substance: DEXAMETHASONE
     Indication: Prophylaxis
     Dosage: 3 DAYS STARTING A DAY BEFORE CHEMOTHERAPY, UNIT DOSE : 2 MG
     Route: 048
     Dates: start: 20150806
  10. DEXAMETHASONE [Concomitant]
     Active Substance: DEXAMETHASONE
     Dosage: , UNIT DOSE : 2 MG , THERAPY DURATION :2 DAYS
     Route: 048
     Dates: start: 20150901, end: 20150903
  11. LOPERAMIDE [Concomitant]
     Active Substance: LOPERAMIDE
     Indication: Prophylaxis
     Dosage: 1 OR 2 CAPSULES, MAXIMUM 8 TIMES A DAY, , UNIT DOSE :2 MG, THERAPY DURATION : 2 YEARS
     Route: 048
     Dates: start: 20150804, end: 20180323
  12. NAPROXEN [Concomitant]
     Active Substance: NAPROXEN
     Dosage: FREQUENCY TIME : 1 AS REQUIRED
     Route: 048

REACTIONS (21)
  - Neuropathy peripheral [Not Recovered/Not Resolved]
  - Skin exfoliation [Not Recovered/Not Resolved]
  - Dysphagia [Not Recovered/Not Resolved]
  - Laryngitis [Unknown]
  - Hypokalaemia [Recovered/Resolved]
  - Myelosuppression [Recovered/Resolved]
  - Decreased appetite [Recovered/Resolved]
  - Ejection fraction decreased [Recovered/Resolved]
  - Neutropenic sepsis [Recovered/Resolved]
  - Erythema [Recovered/Resolved]
  - Nail dystrophy [Recovered/Resolved]
  - Cellulitis [Recovered/Resolved]
  - Chest discomfort [Recovered/Resolved]
  - Oedema peripheral [Recovered/Resolved]
  - Bronchitis [Recovered/Resolved]
  - Onychomadesis [Recovered/Resolved]
  - Dyspepsia [Recovered/Resolved]
  - Myalgia [Recovered/Resolved]
  - Fatigue [Recovered/Resolved]
  - Dysgeusia [Recovered/Resolved]
  - Urinary tract infection [Recovered/Resolved]

NARRATIVE: CASE EVENT DATE: 20150813
